FAERS Safety Report 9053622 (Version 1)
Quarter: 2013Q1

REPORT INFORMATION
  Report Type: Spontaneous
  Country: US (occurrence: None)
  Receive Date: 20130117
  Receipt Date: 20130117
  Transmission Date: 20140127
  Serious: Yes (Life-Threatening, Hospitalization)
  Sender: FDA-Public Use
  Company Number: DAV-AE-ALP-13-02

PATIENT
  Age: 54 Year
  Sex: Male

DRUGS (1)
  1. ALPRAZOLAM [Suspect]

REACTIONS (4)
  - Overdose [None]
  - Posterior reversible encephalopathy syndrome [None]
  - Disorientation [None]
  - General physical health deterioration [None]
